FAERS Safety Report 18206307 (Version 1)
Quarter: 2020Q3

REPORT INFORMATION
  Report Type: Spontaneous
  Country: US (occurrence: US)
  Receive Date: 20200828
  Receipt Date: 20200828
  Transmission Date: 20201103
  Serious: No
  Sender: FDA-Public Use
  Company Number: NVSC2020US237425

PATIENT
  Sex: Female
  Weight: 52.15 kg

DRUGS (1)
  1. COMBIPATCH [Suspect]
     Active Substance: ESTRADIOL\NORETHINDRONE ACETATE
     Indication: MENOPAUSAL SYMPTOMS
     Dosage: UNK (0.05/0.25) MG, QW
     Route: 062

REACTIONS (6)
  - Product adhesion issue [Not Recovered/Not Resolved]
  - Product administered at inappropriate site [Not Recovered/Not Resolved]
  - Wrong technique in product usage process [Unknown]
  - Application site rash [Unknown]
  - Breast pain [Recovered/Resolved]
  - Intentional product misuse [Not Recovered/Not Resolved]
